FAERS Safety Report 18170901 (Version 1)
Quarter: 2020Q3

REPORT INFORMATION
  Report Type: Spontaneous
  Country: US (occurrence: US)
  Receive Date: 20200819
  Receipt Date: 20200819
  Transmission Date: 20201103
  Serious: No
  Sender: FDA-Public Use
  Company Number: US-SA-2020SA212045

PATIENT

DRUGS (1)
  1. LANTUS SOLOSTAR [Suspect]
     Active Substance: INSULIN GLARGINE
     Dosage: 8 IU, QD, AT NIGHT
     Route: 065

REACTIONS (3)
  - Blood glucose decreased [Unknown]
  - Device operational issue [Unknown]
  - Extra dose administered [Unknown]
